FAERS Safety Report 7495397-2 (Version None)
Quarter: 2011Q2

REPORT INFORMATION
  Report Type: 
  Country: None (occurrence: None)
  Receive Date: 20110513
  Receipt Date: 20110504
  Transmission Date: 20111010
  Serious: Yes (Other)
  Sender: FDA-Public Use
  Company Number: GB-GDP-11410648

PATIENT
  Age: 54 Year
  Sex: Female

DRUGS (10)
  1. DOXYCYCLINE MONOHYDRATE [Suspect]
     Indication: PRODUCT USED FOR UNKNOWN INDICATION
  2. PREDNISOLONE [Concomitant]
  3. DOXYCYCLINE MONOHYDRATE [Concomitant]
  4. CARBOCISTEINE [Concomitant]
  5. LORAZEPAM [Concomitant]
  6. OMEPRAZOLE [Concomitant]
  7. CLARITHROMYCIN [Concomitant]
  8. ALBUTEROL [Concomitant]
  9. SODIUM CHLORIDE [Concomitant]
  10. PREDNISOLONE SODIUM SUCCINATE INJ [Concomitant]

REACTIONS (1)
  - PHOTOSENSITIVITY REACTION [None]
